FAERS Safety Report 10225004 (Version 1)
Quarter: 2014Q2

REPORT INFORMATION
  Report Type: Spontaneous
  Country: CA (occurrence: CA)
  Receive Date: 20140609
  Receipt Date: 20140609
  Transmission Date: 20141212
  Serious: Yes (Other)
  Sender: FDA-Public Use
  Company Number: CA-PFIZER INC-2014153075

PATIENT
  Age: 8 Week
  Sex: 0

DRUGS (15)
  1. AZITHROMYCIN [Suspect]
     Dosage: UNK MG, 2X/DAY
     Route: 064
  2. ABACAVIR [Suspect]
     Dosage: 300 MG, 2X/DAY
     Route: 064
  3. ACYCLOVIR [Suspect]
     Dosage: UNK
     Route: 064
  4. BACTRIM [Suspect]
     Dosage: UNK
     Route: 064
  5. INTELENCE [Suspect]
     Dosage: 200 MG, 2X/DAY
     Route: 064
  6. ISENTRESS [Suspect]
     Dosage: 400 MG, 2X/DAY
     Route: 064
  7. LAMIVUDINE [Suspect]
     Dosage: 150 MG, 2X/DAY
     Route: 064
  8. PREZISTA [Suspect]
     Dosage: 600 MG, 2X/DAY
     Route: 064
  9. RITONAVIR [Suspect]
     Dosage: 100 MG, 2X/DAY
     Route: 064
  10. TENOFOVIR [Suspect]
     Dosage: 300 MG, 1X/DAY
     Route: 064
  11. ZIDOVUDINE [Suspect]
     Dosage: 300 MG, 2X/DAY
     Route: 064
  12. FOLIC ACID [Concomitant]
  13. IRON [Concomitant]
  14. MAGNESIUM GLUCONATE [Concomitant]
  15. PRENATAL VITAMINS [Concomitant]

REACTIONS (2)
  - Maternal exposure during pregnancy [Recovered/Resolved]
  - Anaemia [Recovered/Resolved]
